FAERS Safety Report 16009725 (Version 1)
Quarter: 2019Q1

REPORT INFORMATION
  Report Type: Spontaneous
  Country: FR (occurrence: FR)
  Receive Date: 20190225
  Receipt Date: 20190225
  Transmission Date: 20190418
  Serious: Yes (Hospitalization, Other)
  Sender: FDA-Public Use
  Company Number: FR-AUROBINDO-AUR-APL-2019-009103

PATIENT

DRUGS (3)
  1. ANAFRANIL [Suspect]
     Active Substance: CLOMIPRAMINE HYDROCHLORIDE
     Indication: ENURESIS
     Dosage: 20 MILLIGRAM, ONCE A DAY, 20 MG PAR JOUR
     Route: 048
     Dates: start: 20171101, end: 20180216
  2. IBUPROFEN ARROW [Suspect]
     Active Substance: IBUPROFEN
     Indication: SICKLE CELL ANAEMIA WITH CRISIS
     Dosage: 600 MILLIGRAM, ONCE A DAY, 200 MG 3 FOIS PAR JOUR
     Route: 048
     Dates: start: 20180128, end: 20180218
  3. EXJADE [Suspect]
     Active Substance: DEFERASIROX
     Indication: SICKLE CELL DISEASE
     Dosage: 750 MILLIGRAM, ONCE A DAY, 750 MG PAR JOUR
     Route: 048
     Dates: start: 20150901, end: 20180214

REACTIONS (1)
  - Pancytopenia [Recovering/Resolving]

NARRATIVE: CASE EVENT DATE: 20180211
